FAERS Safety Report 11747961 (Version 2)
Quarter: 2015Q4

REPORT INFORMATION
  Report Type: Spontaneous
  Country: US (occurrence: US)
  Receive Date: 20151117
  Receipt Date: 20151119
  Transmission Date: 20160304
  Serious: No
  Sender: FDA-Public Use
  Company Number: US-009507513-1511USA005914

PATIENT
  Sex: Female

DRUGS (1)
  1. VYTORIN [Suspect]
     Active Substance: EZETIMIBE\SIMVASTATIN
     Indication: BLOOD CHOLESTEROL DECREASED
     Dosage: 10/20MG /ONCE DAILY
     Route: 048

REACTIONS (2)
  - Product quality issue [Unknown]
  - Wrong technique in product usage process [Unknown]
